FAERS Safety Report 22629342 (Version 1)
Quarter: 2023Q2

REPORT INFORMATION
  Report Type: Spontaneous
  Country: IN (occurrence: IN)
  Receive Date: 20230622
  Receipt Date: 20230622
  Transmission Date: 20230721
  Serious: Yes (Hospitalization, Other)
  Sender: FDA-Public Use
  Company Number: IN-LUPIN PHARMACEUTICALS INC.-2023-04815

PATIENT
  Age: 23 Year
  Sex: Female

DRUGS (3)
  1. ETHAMBUTOL [Suspect]
     Active Substance: ETHAMBUTOL HYDROCHLORIDE
     Indication: Meningitis tuberculous
     Dosage: UNK
     Route: 065
  2. EPTOIN [Suspect]
     Active Substance: PHENYTOIN SODIUM
     Indication: Product used for unknown indication
     Dosage: UNK
     Route: 065
  3. STREPTOMYCIN [Suspect]
     Active Substance: STREPTOMYCIN SULFATE
     Indication: Meningitis tuberculous
     Dosage: UNK
     Route: 065

REACTIONS (1)
  - Toxic epidermal necrolysis [Recovered/Resolved]
